FAERS Safety Report 13889218 (Version 1)
Quarter: 2017Q3

REPORT INFORMATION
  Report Type: Other
  Country: SI (occurrence: SI)
  Receive Date: 20170822
  Receipt Date: 20170822
  Transmission Date: 20171127
  Serious: Yes (Hospitalization)
  Sender: FDA-Public Use
  Company Number: SI-VELOXIS PHARMACEUTICALS-2024902

PATIENT
  Age: 65 Year
  Sex: Male

DRUGS (9)
  1. LEDIPASVIR [Suspect]
     Active Substance: LEDIPASVIR
  2. VALGANCICLOVIR. [Suspect]
     Active Substance: VALGANCICLOVIR
  3. MYCOPHENOLIC ACID (MYCOPHENOLATE SODIUM) [Suspect]
     Active Substance: MYCOPHENOLATE SODIUM
  4. RIBAVIRIN. [Suspect]
     Active Substance: RIBAVIRIN
  5. METHYLPREDNISOLONE. [Suspect]
     Active Substance: METHYLPREDNISOLONE
  6. CIDOFOVIR. [Suspect]
     Active Substance: CIDOFOVIR
  7. SOFOSBUVIR [Suspect]
     Active Substance: SOFOSBUVIR
  8. ENVARSUS XR [Suspect]
     Active Substance: TACROLIMUS
     Indication: IMMUNOSUPPRESSION
  9. MIRTAZAPINE. [Suspect]
     Active Substance: MIRTAZAPINE

REACTIONS (4)
  - Progressive multifocal leukoencephalopathy [Recovering/Resolving]
  - Immune reconstitution inflammatory syndrome [Recovering/Resolving]
  - JC virus infection [Recovered/Resolved]
  - Neutropenia [Recovered/Resolved]
